FAERS Safety Report 16117028 (Version 1)
Quarter: 2019Q2

REPORT INFORMATION
  Report Type: Spontaneous
  Country: US (occurrence: US)
  Receive Date: 20190325
  Receipt Date: 20190325
  Transmission Date: 20190711
  Serious: Yes (Disabling)
  Sender: FDA-Public Use
  Company Number: None

PATIENT
  Age: 18 Year
  Sex: Female
  Weight: 60.75 kg

DRUGS (3)
  1. ADVIL [Concomitant]
     Active Substance: IBUPROFEN
  2. CIPROFLOXACIN. [Suspect]
     Active Substance: CIPROFLOXACIN
  3. ALEVE [Concomitant]
     Active Substance: NAPROXEN SODIUM

REACTIONS (6)
  - Arthralgia [None]
  - Multiple allergies [None]
  - Drug hypersensitivity [None]
  - Irritable bowel syndrome [None]
  - Joint noise [None]
  - Panic disorder [None]

NARRATIVE: CASE EVENT DATE: 20160112
